FAERS Safety Report 23286299 (Version 2)
Quarter: 2024Q1

REPORT INFORMATION
  Report Type: Spontaneous
  Country: EG (occurrence: EG)
  Receive Date: 20231212
  Receipt Date: 20240102
  Transmission Date: 20240409
  Serious: Yes (Death, Other)
  Sender: FDA-Public Use
  Company Number: EG-NOVOPROD-1146934

PATIENT
  Age: 55 Year
  Sex: Female

DRUGS (6)
  1. INSULIN HUMAN [Suspect]
     Active Substance: INSULIN HUMAN
     Indication: Type 2 diabetes mellitus
     Dosage: 70U MORNING-30 U NIGHT.(STARTED 5 YEARS BEFORE DEATH)
     Route: 058
  2. INSULIN HUMAN [Suspect]
     Active Substance: INSULIN HUMAN
     Dosage: UNK (OVERDOSE)
     Route: 058
  3. DINITRA [Concomitant]
     Indication: Hypertension
     Dosage: 1 TAB DAILY
     Route: 060
  4. CABOTIN [Concomitant]
     Indication: Hypertension
     Dosage: UNK
  5. BISOPROLOL FUMARATE [Concomitant]
     Active Substance: BISOPROLOL FUMARATE
     Indication: Hypertension
     Dosage: UNK
     Route: 048
  6. ATORVASTATIN CALCIUM [Concomitant]
     Active Substance: ATORVASTATIN CALCIUM
     Indication: Blood cholesterol
     Dosage: 1 TAB BEFORE LUNCH
     Route: 048

REACTIONS (7)
  - Hepatotoxicity [Fatal]
  - Hyperglycaemia [Fatal]
  - Drug ineffective [Fatal]
  - Cardiomyopathy [Not Recovered/Not Resolved]
  - Diabetic coma [Recovered/Resolved]
  - Renal disorder [Not Recovered/Not Resolved]
  - Overdose [Unknown]
